FAERS Safety Report 6413905-7 (Version None)
Quarter: 2009Q4

REPORT INFORMATION
  Report Type: 
  Country: None (occurrence: None)
  Receive Date: 20091026
  Receipt Date: 20091012
  Transmission Date: 20100525
  Serious: Yes (Other)
  Sender: FDA-Public Use
  Company Number: B0598980A

PATIENT
  Age: 42 Year
  Sex: Male

DRUGS (1)
  1. TRIZIVIR [Suspect]
     Indication: HIV INFECTION
     Route: 065

REACTIONS (3)
  - FACIAL WASTING [None]
  - HYPERTROPHY [None]
  - LIPODYSTROPHY ACQUIRED [None]
